FAERS Safety Report 10062801 (Version 1)
Quarter: 2014Q1

REPORT INFORMATION
  Report Type: Spontaneous
  Country: US (occurrence: None)
  Receive Date: 20140328
  Receipt Date: 20140328
  Transmission Date: 20141002
  Serious: Yes (Hospitalization)
  Sender: FDA-Public Use
  Company Number: CABO-13003772

PATIENT
  Age: 84 Year
  Sex: Male
  Weight: 60.9 kg

DRUGS (6)
  1. COMETRIQ [Suspect]
     Indication: THYROID CANCER
     Route: 048
     Dates: start: 20131211
  2. COZAAR (LOSARTAN POTASSIUM) (50 MILLIGRAM, TABLETS) (LOSARTAN POTASSIUM) [Concomitant]
  3. ACETAMINOPHEN (PARACETAMOL) [Concomitant]
  4. APAP/CODEINE (CODEINE PHIOSPHATE, PARACETAMOL) [Concomitant]
  5. POTASSIUM (POTASSIUM) [Concomitant]
  6. LEVOTHYROXINE (LEVOTHYROXINE SODIUM) [Concomitant]

REACTIONS (11)
  - Oral disorder [None]
  - Muscular weakness [None]
  - Speech disorder [None]
  - Cheilitis [None]
  - Dry mouth [None]
  - Nasal dryness [None]
  - Epistaxis [None]
  - Stomatitis [None]
  - Dysgeusia [None]
  - Weight decreased [None]
  - Constipation [None]
